FAERS Safety Report 8306774-1 (Version None)
Quarter: 2012Q2

REPORT INFORMATION
  Report Type: 
  Country: None (occurrence: None)
  Receive Date: 20120424
  Receipt Date: 20120418
  Transmission Date: 20120825
  Serious: No
  Sender: FDA-Public Use
  Company Number: US-PFIZER INC-2012096833

PATIENT
  Age: 94 Year
  Sex: Female

DRUGS (4)
  1. VITAMIN B COMPLEX CAP [Concomitant]
     Dosage: UNK
  2. NORVASC [Concomitant]
     Indication: HYPERTENSION
     Dosage: 2.5 MG, UNK
  3. TOVIAZ [Suspect]
     Indication: BLADDER DISORDER
     Dosage: 8 MG, 1X/DAY
     Route: 048
     Dates: start: 20100101, end: 20100101
  4. ASPIRIN [Concomitant]
     Dosage: UNK

REACTIONS (2)
  - HYPERTENSION [None]
  - HEADACHE [None]
